FAERS Safety Report 5287678-8 (Version None)
Quarter: 2007Q1

REPORT INFORMATION
  Report Type: 
  Country: None (occurrence: None)
  Receive Date: 20070105
  Receipt Date: 20061128
  Transmission Date: 20070707
  Serious: Yes (Other)
  Sender: FDA-Public Use
  Company Number: US-JNJFOC-20061106683

PATIENT
  Age: 35 Year
  Sex: Female

DRUGS (2)
  1. ULTRAM ER [Suspect]
     Indication: BACK PAIN
  2. FLEXORIL (CYCLOBENZAPRINE HYDROCHLORIDE) [Suspect]
     Indication: DRUG USE FOR UNKNOWN INDICATION

REACTIONS (2)
  - CONVULSION [None]
  - DRUG INTERACTION [None]
